FAERS Safety Report 5875173-4 (Version None)
Quarter: 2008Q3

REPORT INFORMATION
  Report Type: 
  Country: None (occurrence: None)
  Receive Date: 20080909
  Receipt Date: 20080829
  Transmission Date: 20090109
  Serious: Yes (Hospitalization)
  Sender: FDA-Public Use
  Company Number: GB-JNJFOC-20080900624

PATIENT
  Age: 33 Year
  Sex: Female
  Weight: 53 kg

DRUGS (4)
  1. REMICADE [Suspect]
     Route: 042
  2. REMICADE [Suspect]
     Indication: COLITIS ULCERATIVE
     Route: 042
  3. ADCAL D3 [Concomitant]
     Indication: OSTEOPOROSIS
  4. ASACOL [Concomitant]
     Indication: COLITIS ULCERATIVE

REACTIONS (1)
  - DERMATITIS BULLOUS [None]
